FAERS Safety Report 8573540-1 (Version None)
Quarter: 2012Q2

REPORT INFORMATION
  Report Type: 
  Country: None (occurrence: None)
  Receive Date: 20120423
  Receipt Date: 20100115
  Transmission Date: 20120825
  Serious: Yes (Other)
  Sender: FDA-Public Use
  Company Number: PHEH2009US18359

PATIENT
  Age: 72 Year
  Sex: Male

DRUGS (2)
  1. ANALGESICS (NO INGREDIENTS/SUBSTANCES) [Concomitant]
  2. EXJADE [Suspect]
     Dosage: 1500 MG, QD, ORAL
     Route: 048
     Dates: start: 20081031, end: 20091113

REACTIONS (1)
  - NEOPLASM MALIGNANT [None]
